FAERS Safety Report 8012171-9 (Version None)
Quarter: 2011Q4

REPORT INFORMATION
  Report Type: 
  Country: None (occurrence: None)
  Receive Date: 20111228
  Receipt Date: 20111219
  Transmission Date: 20120403
  Serious: Yes (Other)
  Sender: FDA-Public Use
  Company Number: FR-ASTRAZENECA-2011SE77120

PATIENT
  Age: 60 Year
  Sex: Male

DRUGS (2)
  1. PROZAC [Concomitant]
  2. QUETIAPINE FUMARATE [Suspect]
     Indication: BIPOLAR DISORDER
     Dosage: PATIENT TOOK 1 TABLET OF 50 MG
     Route: 048
     Dates: start: 20111215, end: 20111215

REACTIONS (3)
  - PARKINSON'S DISEASE [None]
  - TRANCE [None]
  - DYSTONIA [None]
